FAERS Safety Report 4446846-5 (Version None)
Quarter: 2004Q3

REPORT INFORMATION
  Report Type: 
  Country: None (occurrence: None)
  Receive Date: 20040908
  Receipt Date: 20040823
  Transmission Date: 20050211
  Serious: Yes (Hospitalization)
  Sender: FDA-Public Use
  Company Number: 2004229853SE

PATIENT
  Sex: Female

DRUGS (4)
  1. PREDNISOLONE [Suspect]
     Indication: INTERVERTEBRAL DISC DISPLACEMENT
     Dosage: 60MG, QD, ORAL : 10 MG , QD, ORAL
     Route: 048
     Dates: start: 20010601
  2. PREDNISOLONE [Suspect]
     Indication: INTERVERTEBRAL DISC DISPLACEMENT
     Dosage: 60MG, QD, ORAL : 10 MG , QD, ORAL
     Route: 048
     Dates: start: 20040429
  3. PROGYNON [Concomitant]
  4. MAXALT [Concomitant]

REACTIONS (7)
  - BONE DISORDER [None]
  - GASTRIC DISORDER [None]
  - IMPAIRED HEALING [None]
  - INTERVERTEBRAL DISC DISPLACEMENT [None]
  - MENTAL DISORDER [None]
  - MUSCULOSKELETAL PAIN [None]
  - SKIN DISORDER [None]
